FAERS Safety Report 5442901-1 (Version None)
Quarter: 2007Q3

REPORT INFORMATION
  Report Type: 
  Country: None (occurrence: None)
  Receive Date: 20070831
  Receipt Date: 20070831
  Transmission Date: 20080115
  Serious: Yes (Hospitalization)
  Sender: FDA-Public Use
  Company Number: None

PATIENT
  Sex: Male
  Weight: 89.8122 kg

DRUGS (4)
  1. IRINOTECAN HCL [Suspect]
     Indication: SMALL CELL LUNG CANCER STAGE UNSPECIFIED
     Dosage: 50MG/M2/35MG/M2 DAY 1 + 8 IV
     Route: 042
     Dates: start: 20070313, end: 20070424
  2. IRINOTECAN HCL [Suspect]
     Indication: SMALL CELL LUNG CANCER STAGE UNSPECIFIED
     Dosage: 50MG/M2/35MG/M2 DAY 1 + 8 IV
     Route: 042
     Dates: start: 20070501, end: 20070731
  3. CARBOPLATIN [Suspect]
     Dosage: 495MG DAY 1 IV
     Route: 042
     Dates: start: 20070313, end: 20070724
  4. CYCLOBENZAPRINE HCL [Concomitant]

REACTIONS (1)
  - PANCREATITIS ACUTE [None]
